FAERS Safety Report 20743676 (Version 1)
Quarter: 2022Q2

REPORT INFORMATION
  Report Type: Spontaneous
  Country: AU (occurrence: AU)
  Receive Date: 20220425
  Receipt Date: 20220425
  Transmission Date: 20220721
  Serious: Yes (Hospitalization)
  Sender: FDA-Public Use
  Company Number: AU-KOREA IPSEN Pharma-2022-10947

PATIENT
  Age: 45 Year
  Sex: Female

DRUGS (2)
  1. LANREOTIDE ACETATE [Suspect]
     Active Substance: LANREOTIDE ACETATE
     Indication: Pancreatic neuroendocrine tumour
     Route: 065
  2. LANREOTIDE ACETATE [Suspect]
     Active Substance: LANREOTIDE ACETATE
     Route: 065

REACTIONS (6)
  - Diarrhoea [Unknown]
  - Dehydration [Unknown]
  - Renal impairment [Unknown]
  - Electrolyte imbalance [Unknown]
  - Off label use [Unknown]
  - Off label use [Unknown]
